FAERS Safety Report 7353776-8 (Version None)
Quarter: 2011Q1

REPORT INFORMATION
  Report Type: 
  Country: None (occurrence: None)
  Receive Date: 20110310
  Receipt Date: 20110310
  Transmission Date: 20110831
  Serious: Yes (Hospitalization, Disabling, Other)
  Sender: FDA-Public Use
  Company Number: None

PATIENT
  Age: 67 Year
  Sex: Male
  Weight: 53.2977 kg

DRUGS (1)
  1. MELPHALAN 200 MCG/KILO RECOMMENDED DOSAGE [Suspect]
     Indication: STEM CELL TRANSPLANT
     Dosage: 13800 MCG?? ONE TIME IVP
     Route: 042
     Dates: start: 20110201

REACTIONS (11)
  - HEART RATE INCREASED [None]
  - DIARRHOEA [None]
  - CHEST PAIN [None]
  - ASTHENIA [None]
  - GALLOP RHYTHM PRESENT [None]
  - DECREASED APPETITE [None]
  - FEELING ABNORMAL [None]
  - CARDIAC FAILURE CONGESTIVE [None]
  - VOMITING [None]
  - BLOOD PRESSURE INCREASED [None]
  - OXYGEN SATURATION DECREASED [None]
